FAERS Safety Report 7285354-3 (Version None)
Quarter: 2011Q1

REPORT INFORMATION
  Report Type: 
  Country: None (occurrence: None)
  Receive Date: 20110210
  Receipt Date: 20110202
  Transmission Date: 20110831
  Serious: Yes (Hospitalization)
  Sender: FDA-Public Use
  Company Number: PL-ROCHE-757330

PATIENT
  Age: 48 Year
  Sex: Female

DRUGS (2)
  1. OXALIPLATIN [Concomitant]
  2. XELODA [Suspect]
     Route: 065

REACTIONS (1)
  - ARTERIOSPASM CORONARY [None]
